FAERS Safety Report 15301014 (Version 1)
Quarter: 2018Q3

REPORT INFORMATION
  Report Type: Spontaneous
  Country: DK (occurrence: DK)
  Receive Date: 20180821
  Receipt Date: 20180821
  Transmission Date: 20181010
  Serious: Yes (Hospitalization)
  Sender: FDA-Public Use
  Company Number: DK-SA-2018SA224843

PATIENT
  Age: 61 Year
  Sex: Female

DRUGS (8)
  1. ESTRING [Concomitant]
     Active Substance: ESTRADIOL
     Indication: HORMONE THERAPY
     Dosage: STYRKE: 7,5 MIKROGRAM/24 TIMER
     Route: 067
     Dates: start: 20150113
  2. SUMATRIPTAN ACCORD [Concomitant]
     Indication: MIGRAINE
     Dosage: STYRKE: 50 MG.
     Route: 048
     Dates: start: 20150113
  3. BETOLVEX [CYANOCOBALAMIN ZINC TANNATE] [Concomitant]
     Indication: VITAMIN B12 DEFICIENCY
     Dosage: STYRKE: 1 MG.
     Route: 048
     Dates: start: 20171005
  4. OMEPRAZOL ACTAVIS [Concomitant]
     Active Substance: OMEPRAZOLE
     Indication: PROPHYLAXIS AGAINST GASTROINTESTINAL ULCER
     Dosage: STYRKE: 20 MG.
     Route: 048
     Dates: start: 20180724
  5. DICLON [DICLOFENAC DEANOL] [Concomitant]
     Indication: PRODUCT USED FOR UNKNOWN INDICATION
     Dosage: UNK UNK, UNK
     Route: 048
     Dates: start: 20180725
  6. PARACETAMOL B.BRAUN [Concomitant]
     Active Substance: ACETAMINOPHEN
     Indication: PAIN
     Dosage: STYRKE: 500 MG.
     Route: 048
     Dates: start: 20170704
  7. PROPRANOLOL [Concomitant]
     Active Substance: PROPRANOLOL HYDROCHLORIDE
     Indication: MIGRAINE PROPHYLAXIS
     Dosage: STYRKE: 10 MG.
     Route: 048
     Dates: start: 20160301
  8. GAVISCON [Suspect]
     Active Substance: ALUMINUM HYDROXIDE\MAGNESIUM CARBONATE
     Indication: ABDOMINAL PAIN UPPER
     Dosage: 20 ML, UNK
     Route: 048
     Dates: start: 20180725, end: 20180725

REACTIONS (1)
  - Vomiting [Recovered/Resolved]

NARRATIVE: CASE EVENT DATE: 20180725
